FAERS Safety Report 8771903 (Version 2)
Quarter: 2013Q1

REPORT INFORMATION
  Report Type: Spontaneous
  Country: BR (occurrence: BR)
  Receive Date: 20120905
  Receipt Date: 20130327
  Transmission Date: 20140127
  Serious: Yes (Other)
  Sender: FDA-Public Use
  Company Number: PHHY2012BR076597

PATIENT
  Sex: Female

DRUGS (6)
  1. DIOVAN HCT [Suspect]
     Indication: HYPERTENSION
     Dosage: 01 DF, QD
  2. LIPITOR [Suspect]
     Indication: BLOOD CHOLESTEROL
     Dosage: 01 DF, QD
  3. METFORMIN [Concomitant]
     Indication: DIABETES MELLITUS
     Dosage: 3 DF(850MG), A DAY
     Route: 048
  4. ASPIRINA PREVENT [Concomitant]
     Indication: ANTICOAGULANT THERAPY
     Dosage: 1 DF(100MG), A DAY
     Route: 048
  5. CLOPIDOGREL [Concomitant]
     Indication: ANTICOAGULANT THERAPY
     Dosage: 1 DF(75MG), A DAY
     Route: 048
  6. ATENOLOL [Concomitant]
     Indication: HYPERTENSION
     Dosage: 1 DF(25MG), A DAY
     Route: 048

REACTIONS (2)
  - Venous occlusion [Recovered/Resolved]
  - Chest pain [Not Recovered/Not Resolved]
